FAERS Safety Report 6735973-5 (Version None)
Quarter: 2010Q2

REPORT INFORMATION
  Report Type: 
  Country: None (occurrence: None)
  Receive Date: 20100521
  Receipt Date: 20100514
  Transmission Date: 20101027
  Serious: Yes (Other)
  Sender: FDA-Public Use
  Company Number: B0656713A

PATIENT
  Age: 8 Year
  Sex: Female

DRUGS (1)
  1. LAMOTRIGINE [Suspect]

REACTIONS (4)
  - ABNORMAL BEHAVIOUR [None]
  - APHASIA [None]
  - COMMUNICATION DISORDER [None]
  - SOMNOLENCE [None]
